FAERS Safety Report 25456216 (Version 1)
Quarter: 2025Q2

REPORT INFORMATION
  Report Type: Spontaneous
  Country: KR (occurrence: KR)
  Receive Date: 20250619
  Receipt Date: 20250619
  Transmission Date: 20250717
  Serious: Yes (Other)
  Sender: SANOFI AVENTIS
  Company Number: KR-ASTELLAS-2025-AER-032900

PATIENT
  Sex: Male

DRUGS (3)
  1. HARNAL [Suspect]
     Active Substance: TAMSULOSIN HYDROCHLORIDE
     Indication: Product used for unknown indication
     Dosage: 1 DF, QD
     Route: 065
     Dates: start: 20240816, end: 20240823
  2. CEFPODOXIME PROXETIL [Suspect]
     Active Substance: CEFPODOXIME PROXETIL
     Indication: Nephrolithiasis
     Dosage: 1 DF, BID
     Route: 065
     Dates: start: 20240816, end: 20240819
  3. ACECLOFENAC [Suspect]
     Active Substance: ACECLOFENAC
     Indication: Nephrolithiasis
     Dosage: 1 DF, BID
     Route: 065
     Dates: start: 20240816, end: 20240821

REACTIONS (4)
  - Circulatory collapse [Unknown]
  - Chest pain [Unknown]
  - Palpitations [Unknown]
  - Chest discomfort [Unknown]

NARRATIVE: CASE EVENT DATE: 20240817
